FAERS Safety Report 12232340 (Version 1)
Quarter: 2016Q2

REPORT INFORMATION
  Report Type: Spontaneous
  Country: DE (occurrence: DE)
  Receive Date: 20160401
  Receipt Date: 20160401
  Transmission Date: 20160815
  Serious: Yes (Death, Other)
  Sender: FDA-Public Use
  Company Number: PHHY2016DE042225

PATIENT
  Sex: Male

DRUGS (3)
  1. EVEROLIMUS [Suspect]
     Active Substance: EVEROLIMUS
     Indication: RENAL CELL CARCINOMA
     Dosage: UNK
     Route: 065
     Dates: start: 201009
  2. EVEROLIMUS [Suspect]
     Active Substance: EVEROLIMUS
     Dosage: 5 MG, QD
     Route: 065
     Dates: start: 201111
  3. EVEROLIMUS [Suspect]
     Active Substance: EVEROLIMUS
     Dosage: 10 MG AND 5 MG EVERY ALTERNATE DAY
     Route: 065

REACTIONS (12)
  - Infection [Unknown]
  - Malignant neoplasm progression [Unknown]
  - Fatigue [Unknown]
  - Nephrosclerosis [Unknown]
  - Renal impairment [Unknown]
  - Metastasis [Unknown]
  - Dialysis related complication [Unknown]
  - Pneumonitis [Unknown]
  - Death [Fatal]
  - Colitis [Unknown]
  - Pneumonia [Unknown]
  - Diarrhoea [Unknown]

NARRATIVE: CASE EVENT DATE: 201101
